FAERS Safety Report 17840788 (Version 2)
Quarter: 2020Q2

REPORT INFORMATION
  Report Type: Spontaneous
  Country: SE (occurrence: SE)
  Receive Date: 20200529
  Receipt Date: 20200601
  Transmission Date: 20200714
  Serious: Yes (Life-Threatening)
  Sender: FDA-Public Use
  Company Number: SE-JNJFOC-20200526025

PATIENT
  Age: 57 Year
  Sex: Male

DRUGS (4)
  1. STELARA [Suspect]
     Active Substance: USTEKINUMAB
     Indication: PSORIATIC ARTHROPATHY
     Route: 058
     Dates: start: 20200301
  2. STELARA [Suspect]
     Active Substance: USTEKINUMAB
  3. DICLOFENAC [Concomitant]
     Active Substance: DICLOFENAC
     Dosage: AS REQUIRED
  4. ALVEDON [Concomitant]
     Active Substance: ACETAMINOPHEN
     Dosage: AS REQUIRED

REACTIONS (1)
  - Pulmonary embolism [Not Recovered/Not Resolved]

NARRATIVE: CASE EVENT DATE: 202003
